FAERS Safety Report 18773283 (Version 2)
Quarter: 2021Q1

REPORT INFORMATION
  Report Type: Spontaneous
  Country: None (occurrence: US)
  Receive Date: 20210122
  Receipt Date: 20210316
  Transmission Date: 20210419
  Serious: Yes (Other)
  Sender: FDA-Public Use
  Company Number: US-GLAXOSMITHKLINE-US2021GSK014832

PATIENT
  Sex: Female

DRUGS (4)
  1. ZANTAC [Suspect]
     Active Substance: RANITIDINE HYDROCHLORIDE
     Indication: COLITIS
     Dosage: 150 MG, QD
     Route: 065
     Dates: start: 200006, end: 201909
  2. RANITIDINE. [Suspect]
     Active Substance: RANITIDINE
     Indication: COLITIS
     Dosage: 300 MG, QD
     Route: 065
     Dates: start: 200006, end: 201909
  3. ZANTAC [Suspect]
     Active Substance: RANITIDINE HYDROCHLORIDE
     Indication: COLITIS
     Dosage: 150 MG, QD
     Route: 065
     Dates: start: 200006, end: 201909
  4. RANITIDINE. [Suspect]
     Active Substance: RANITIDINE
     Indication: COLITIS
     Dosage: 300 MG, QD
     Route: 065
     Dates: start: 200006, end: 201909

REACTIONS (1)
  - Renal cancer [Unknown]
